FAERS Safety Report 5892191-0 (Version None)
Quarter: 2008Q3

REPORT INFORMATION
  Report Type: 
  Country: None (occurrence: None)
  Receive Date: 20080918
  Receipt Date: 20080903
  Transmission Date: 20090109
  Serious: Yes (Death, Hospitalization)
  Sender: FDA-Public Use
  Company Number: 2008S1016118

PATIENT
  Age: 57 Year
  Sex: Male

DRUGS (6)
  1. AZATHIOPRINE [Suspect]
     Indication: CROHN'S DISEASE
     Dosage: 50 MG;3 TIMES A DAY , ORAL
     Route: 048
     Dates: start: 20050830, end: 20051104
  2. MESALAMINE [Suspect]
     Indication: CROHN'S DISEASE
     Dosage: 1000 MG;3 TIMES A DAY, ORAL
     Route: 048
     Dates: start: 20050830, end: 20051104
  3. AMOXICILLIN [Concomitant]
  4. ATENOLOL [Concomitant]
  5. BENDROFLUAZIDE (BENDROFLUMETHIAZIDE) [Concomitant]
  6. RAMIPRIL [Concomitant]

REACTIONS (1)
  - LUNG DISORDER [None]
